FAERS Safety Report 8337564-1 (Version None)
Quarter: 2012Q2

REPORT INFORMATION
  Report Type: 
  Country: None (occurrence: None)
  Receive Date: 20120504
  Receipt Date: 20120423
  Transmission Date: 20120825
  Serious: Yes (Hospitalization)
  Sender: FDA-Public Use
  Company Number: DE-ROCHE-1062937

PATIENT
  Sex: Female
  Weight: 67 kg

DRUGS (3)
  1. PEGASYS [Suspect]
     Indication: HEPATITIS C
     Route: 058
     Dates: start: 20110923
  2. L-POLAMIDON [Concomitant]
     Route: 048
     Dates: start: 20071101
  3. COPEGUS [Suspect]
     Indication: HEPATITIS C

REACTIONS (1)
  - ALCOHOLISM [None]
